FAERS Safety Report 5311084-0 (Version None)
Quarter: 2007Q2

REPORT INFORMATION
  Report Type: 
  Country: None (occurrence: None)
  Receive Date: 20070427
  Receipt Date: 20070427
  Transmission Date: 20071010
  Serious: No
  Sender: FDA-Public Use
  Company Number: None

PATIENT
  Age: 79 Year
  Sex: Female
  Weight: 72.5755 kg

DRUGS (1)
  1. AMLODIPINE 10MG MYLAN [Suspect]
     Dosage: 10MG QD PO
     Route: 048
     Dates: start: 20070405, end: 20070425

REACTIONS (1)
  - DIARRHOEA [None]
